FAERS Safety Report 4772058-1 (Version None)
Quarter: 2005Q3

REPORT INFORMATION
  Report Type: 
  Country: None (occurrence: None)
  Receive Date: 20050918
  Receipt Date: 20050216
  Transmission Date: 20060218
  Serious: Yes (Life-Threatening, Disabling)
  Sender: FDA-Public Use
  Company Number: US-MERCK-0502USA02105

PATIENT
  Age: 57 Year
  Sex: Male

DRUGS (4)
  1. VIOXX [Suspect]
     Indication: ARTHRITIS
     Route: 048
     Dates: start: 20040101, end: 20040930
  2. [THERAPY UNSPECIFIED] [Concomitant]
     Route: 065
  3. HYDROCHLOROTHIAZIDE [Concomitant]
     Route: 065
  4. CLONIDINE [Concomitant]
     Route: 065

REACTIONS (5)
  - CARDIOMEGALY [None]
  - DIFFICULTY IN WALKING [None]
  - DYSPNOEA [None]
  - HEADACHE [None]
  - INFLAMMATION [None]
